FAERS Safety Report 7668449-1 (Version None)
Quarter: 2011Q3

REPORT INFORMATION
  Report Type: 
  Country: None (occurrence: None)
  Receive Date: 20110808
  Receipt Date: 20110201
  Transmission Date: 20111222
  Serious: No
  Sender: FDA-Public Use
  Company Number: US-BAYER-2011-011541

PATIENT
  Age: 20 Year
  Sex: Female

DRUGS (1)
  1. MAGNEVIST [Suspect]

REACTIONS (1)
  - PAIN IN EXTREMITY [None]
